FAERS Safety Report 14225321 (Version 1)
Quarter: 2017Q4

REPORT INFORMATION
  Report Type: Spontaneous
  Country: US (occurrence: None)
  Receive Date: 20171122
  Receipt Date: 20171122
  Transmission Date: 20180321
  Serious: No
  Sender: FDA-Public Use
  Company Number: None

PATIENT
  Age: 63 Year
  Sex: Male

DRUGS (1)
  1. TEMOZOLOMIDE 100MG SANDOZ [Suspect]
     Active Substance: TEMOZOLOMIDE
     Indication: NEOPLASM MALIGNANT
     Dosage: 100MG TAKE 2 BY MOUTH ONE DAILY FOR 5 DAY ORAL
     Route: 048
     Dates: start: 20170405, end: 20171101

REACTIONS (1)
  - Confusional state [None]

NARRATIVE: CASE EVENT DATE: 20171105
